FAERS Safety Report 16739085 (Version 3)
Quarter: 2020Q1

REPORT INFORMATION
  Report Type: Spontaneous
  Country: FR (occurrence: FR)
  Receive Date: 20190826
  Receipt Date: 20200127
  Transmission Date: 20200409
  Serious: Yes (Death)
  Sender: FDA-Public Use
  Company Number: FR-ASTRAZENECA-2019SF20840

PATIENT
  Age: 63 Year
  Sex: Male
  Weight: 57 kg

DRUGS (14)
  1. TUSSIDANE [Concomitant]
     Active Substance: DEXTROMETHORPHAN HYDROBROMIDE
  2. TAZOCILLIN [Concomitant]
     Active Substance: PIPERACILLIN SODIUM\TAZOBACTAM SODIUM
  3. OGASTORO [Concomitant]
     Active Substance: LANSOPRAZOLE
  4. PANTOPRAZOLE [Suspect]
     Active Substance: PANTOPRAZOLE
     Indication: PRODUCT USED FOR UNKNOWN INDICATION
     Route: 048
     Dates: end: 20190808
  5. IMOVANE [Concomitant]
     Active Substance: ZOPICLONE
     Indication: INSOMNIA
     Route: 048
  6. IMFINZI [Suspect]
     Active Substance: DURVALUMAB
     Indication: BRONCHIAL CARCINOMA
     Route: 041
     Dates: start: 20181220, end: 20190627
  7. AMOXICILLINE [Suspect]
     Active Substance: AMOXICILLIN
     Indication: LUNG DISORDER
     Route: 048
     Dates: start: 20190712, end: 20190801
  8. PENTASA [Suspect]
     Active Substance: MESALAMINE
     Indication: COLITIS
     Route: 048
     Dates: end: 20190802
  9. DAFALGAN CODEINE [Concomitant]
     Active Substance: ACETAMINOPHEN\CODEINE PHOSPHATE
  10. FLUCONAZOLE. [Concomitant]
     Active Substance: FLUCONAZOLE
  11. VANCOMYCIN [Concomitant]
     Active Substance: VANCOMYCIN
  12. SOLUPRED [Concomitant]
     Indication: LUNG DISORDER
     Route: 048
     Dates: start: 20190712, end: 20190801
  13. OFLOXACIN. [Concomitant]
     Active Substance: OFLOXACIN
  14. DUROGESIC [Concomitant]
     Active Substance: FENTANYL

REACTIONS (1)
  - Agranulocytosis [Fatal]

NARRATIVE: CASE EVENT DATE: 20190802
